FAERS Safety Report 10714096 (Version 1)
Quarter: 2015Q1

REPORT INFORMATION
  Report Type: Spontaneous
  Country: US (occurrence: US)
  Receive Date: 20150115
  Receipt Date: 20150115
  Transmission Date: 20150721
  Serious: Yes (Death)
  Sender: FDA-Public Use
  Company Number: US-PFIZER INC-2015008416

PATIENT
  Age: 43 Year
  Sex: Male

DRUGS (4)
  1. COCAINE [Suspect]
     Active Substance: COCAINE
     Dosage: UNK
  2. PHENCYCLIDINE [Suspect]
     Active Substance: PHENCYCLIDINE
     Dosage: UNK
  3. DEXTROMETHORPHAN HBR [Suspect]
     Active Substance: DEXTROMETHORPHAN HYDROBROMIDE
  4. HEROIN [Suspect]
     Active Substance: DIACETYLMORPHINE
     Dosage: UNK

REACTIONS (1)
  - Drug abuse [Fatal]

NARRATIVE: CASE EVENT DATE: 2013
